FAERS Safety Report 13226490 (Version 1)
Quarter: 2017Q1

REPORT INFORMATION
  Report Type: Spontaneous
  Country: US (occurrence: US)
  Receive Date: 20170213
  Receipt Date: 20170213
  Transmission Date: 20170428
  Serious: No
  Sender: FDA-Public Use
  Company Number: None

PATIENT

DRUGS (1)
  1. CEFTRIAXONE SODIUM. [Suspect]
     Active Substance: CEFTRIAXONE SODIUM
     Route: 042

REACTIONS (4)
  - Infusion site swelling [None]
  - Infusion site pain [None]
  - Underdose [None]
  - Infusion site extravasation [None]

NARRATIVE: CASE EVENT DATE: 2016
